FAERS Safety Report 7213800-X (Version None)
Quarter: 2011Q1

REPORT INFORMATION
  Report Type: 
  Country: None (occurrence: None)
  Receive Date: 20110106
  Receipt Date: 20110104
  Transmission Date: 20110831
  Serious: Yes (Death, Hospitalization, Other)
  Sender: FDA-Public Use
  Company Number: DE-TEVA-174751ISR

PATIENT
  Sex: Female

DRUGS (2)
  1. COPAXONE [Suspect]
     Indication: MULTIPLE SCLEROSIS
     Route: 058
     Dates: start: 20080212, end: 20100829
  2. CHEMOTHERAPEUTICS NOS [Concomitant]
     Indication: BREAST CANCER
     Dates: start: 20090211

REACTIONS (10)
  - PULMONARY OEDEMA [None]
  - MOVEMENT DISORDER [None]
  - BREAST CANCER [None]
  - NAUSEA [None]
  - FLUSHING [None]
  - BONE PAIN [None]
  - CONDITION AGGRAVATED [None]
  - METASTASES TO LUNG [None]
  - DYSPNOEA [None]
  - ASTHENIA [None]
